FAERS Safety Report 10022990 (Version 1)
Quarter: 2014Q1

REPORT INFORMATION
  Report Type: Spontaneous
  Country: US (occurrence: US)
  Receive Date: 20140319
  Receipt Date: 20140319
  Transmission Date: 20141002
  Serious: No
  Sender: FDA-Public Use
  Company Number: US-SA-2013SA112549

PATIENT
  Age: 2 Year
  Sex: Female

DRUGS (1)
  1. LEUKINE [Suspect]
     Indication: DIAGNOSTIC PROCEDURE
     Dosage: FORM: LYOPHILIZED POWDER (MIXED WITH BSWI)
     Route: 058

REACTIONS (1)
  - Urticaria [Recovered/Resolved]
